FAERS Safety Report 9414431 (Version 1)
Quarter: 2013Q3

REPORT INFORMATION
  Report Type: Spontaneous
  Country: FR (occurrence: FR)
  Receive Date: 20130723
  Receipt Date: 20130723
  Transmission Date: 20140515
  Serious: Yes (Hospitalization, Other)
  Sender: FDA-Public Use
  Company Number: FR-ASTRAZENECA-2013SE52583

PATIENT
  Age: 31203 Day
  Sex: Female

DRUGS (4)
  1. CRESTOR [Suspect]
     Indication: HYPERCHOLESTEROLAEMIA
     Route: 048
     Dates: start: 20130606
  2. KARDEGIC [Concomitant]
  3. LASILIX [Concomitant]
  4. DETENSIEL [Concomitant]

REACTIONS (5)
  - Renal tubular disorder [Recovering/Resolving]
  - Metabolic acidosis [Recovering/Resolving]
  - Hypotension [Recovering/Resolving]
  - Light chain analysis increased [Recovering/Resolving]
  - Inflammation [Recovering/Resolving]
